FAERS Safety Report 5737716-0 (Version None)
Quarter: 2008Q2

REPORT INFORMATION
  Report Type: 
  Country: None (occurrence: None)
  Receive Date: 20080514
  Receipt Date: 20080505
  Transmission Date: 20081010
  Serious: Yes (Hospitalization, Congenital Anomaly)
  Sender: FDA-Public Use
  Company Number: A0685058A

PATIENT
  Sex: Male
  Weight: 3.1 kg

DRUGS (3)
  1. PAXIL [Suspect]
     Indication: DEPRESSION
     Dosage: 10MG PER DAY
     Dates: start: 19980101, end: 20000101
  2. ADDERALL 10 [Concomitant]
     Indication: ATTENTION DEFICIT/HYPERACTIVITY DISORDER
     Dosage: 20MG PER DAY
     Dates: start: 19990101, end: 20000101
  3. VITAMIN TAB [Concomitant]

REACTIONS (22)
  - AORTA HYPOPLASIA [None]
  - ATRIAL SEPTAL DEFECT [None]
  - BICUSPID AORTIC VALVE [None]
  - CEPHALHAEMATOMA [None]
  - CEREBRAL HYGROMA [None]
  - COARCTATION OF THE AORTA [None]
  - CONGENITAL HYDROCEPHALUS [None]
  - CONVULSION NEONATAL [None]
  - DANDY-WALKER SYNDROME [None]
  - DIGEORGE'S SYNDROME [None]
  - DRUG EXPOSURE DURING PREGNANCY [None]
  - ENTERITIS [None]
  - EYELID PTOSIS CONGENITAL [None]
  - HYPOPLASTIC RIGHT HEART SYNDROME [None]
  - HYPOTONIA NEONATAL [None]
  - MATERNAL DRUGS AFFECTING FOETUS [None]
  - MENINGOCELE [None]
  - NEONATAL RESPIRATORY DISTRESS SYNDROME [None]
  - PATENT DUCTUS ARTERIOSUS [None]
  - SKIN SWELLING [None]
  - STRABISMUS [None]
  - VENTRICULAR SEPTAL DEFECT [None]
